FAERS Safety Report 25308833 (Version 6)
Quarter: 2025Q3

REPORT INFORMATION
  Report Type: Spontaneous
  Country: US (occurrence: US)
  Receive Date: 20250513
  Receipt Date: 20250819
  Transmission Date: 20251021
  Serious: No
  Sender: SANOFI AVENTIS
  Company Number: US-SA-2025SA134858

PATIENT
  Age: 82 Year
  Sex: Male
  Weight: 72.73 kg

DRUGS (20)
  1. DUPIXENT [Suspect]
     Active Substance: DUPILUMAB
     Indication: Asthma
     Route: 058
     Dates: start: 20241118, end: 20241118
  2. DUPIXENT [Suspect]
     Active Substance: DUPILUMAB
     Indication: Neurodermatitis
     Dosage: 300 MG, QOW
     Route: 058
     Dates: start: 202411
  3. HYDRALAZINE [Concomitant]
     Active Substance: HYDRALAZINE HYDROCHLORIDE
  4. LISINOPRIL [Concomitant]
     Active Substance: LISINOPRIL
  5. NEBIVOLOL [Concomitant]
     Active Substance: NEBIVOLOL
  6. EPLERENONE [Concomitant]
     Active Substance: EPLERENONE
  7. ROSUVASTATIN [Concomitant]
     Active Substance: ROSUVASTATIN
  8. TAMSULOSIN [Concomitant]
     Active Substance: TAMSULOSIN
  9. FAMOTIDINE [Concomitant]
     Active Substance: FAMOTIDINE
  10. VITAMIN D NOS [Concomitant]
     Active Substance: CHOLECALCIFEROL\ERGOCALCIFEROL
  11. HYDROCORTISONE [Concomitant]
     Active Substance: HYDROCORTISONE
     Indication: Neurodermatitis
     Dosage: UNK UNK, PRN, APPLY THUNLY TO AFFECTED AREA TOPICALLY TWUCE A DAY FOR 7-10 DAY
     Route: 061
  12. FLUTICASONE [Concomitant]
     Active Substance: FLUTICASONE
  13. NIACIN [Concomitant]
     Active Substance: NIACIN
  14. FINASTERIDE [Concomitant]
     Active Substance: FINASTERIDE
  15. OMEPRAZOLE [Concomitant]
     Active Substance: OMEPRAZOLE
  16. CRESTOR [Concomitant]
     Active Substance: ROSUVASTATIN CALCIUM
  17. BYSTOLIC [Concomitant]
     Active Substance: NEBIVOLOL HYDROCHLORIDE
  18. CLINDAMYCIN [Concomitant]
     Active Substance: CLINDAMYCIN
     Dosage: APPLY TI THE AFFECTED AREAS TWIC AS DAY FOR 10 DYS FOR FLARES, QUATUTY: 60 ML, REFILLS: 1
     Route: 061
  19. FLOMAX [Concomitant]
     Active Substance: TAMSULOSIN HYDROCHLORIDE
  20. AMLODIPINE [Concomitant]
     Active Substance: AMLODIPINE BESYLATE

REACTIONS (11)
  - Skin disorder [Unknown]
  - Pruritus [Unknown]
  - Tinea cruris [Unknown]
  - Discomfort [Recovered/Resolved]
  - Capillary disorder [Unknown]
  - Folliculitis [Unknown]
  - Papule [Unknown]
  - Influenza [Recovered/Resolved]
  - Rash [Unknown]
  - Drug ineffective [Unknown]
  - Neurodermatitis [Unknown]
